FAERS Safety Report 7991671 (Version 2)
Quarter: 2013Q3

REPORT INFORMATION
  Report Type: Spontaneous
  Country: BR (occurrence: BR)
  Receive Date: 20110615
  Receipt Date: 20130712
  Transmission Date: 20140515
  Serious: Yes (Hospitalization, Other)
  Sender: FDA-Public Use
  Company Number: BR-SANOFI-AVENTIS-2011SA036157

PATIENT
  Sex: Male

DRUGS (10)
  1. LANTUS [Suspect]
     Indication: TYPE 2 DIABETES MELLITUS
     Route: 058
  2. AUTOPEN 24 [Suspect]
     Indication: DEVICE THERAPY
     Dosage: PRODUCT CODE: AN4200
  3. AAS [Concomitant]
     Indication: BLOOD DISORDER
     Route: 048
     Dates: start: 20110602
  4. PANTOZOL [Concomitant]
     Route: 048
     Dates: start: 20110602
  5. MONOCORDIL [Concomitant]
     Route: 048
     Dates: start: 20110602
  6. ANCORON [Concomitant]
     Indication: VASODILATATION
     Route: 048
     Dates: start: 20110602
  7. ATENOLOL [Concomitant]
     Indication: BLOOD PRESSURE
     Route: 048
     Dates: start: 20110602
  8. BENERVA [Concomitant]
     Indication: VITAMIN SUPPLEMENTATION
     Route: 048
     Dates: start: 20110602
  9. ENDOFOLIN [Concomitant]
     Route: 048
     Dates: start: 20110602
  10. SIMVASTATIN [Concomitant]
     Indication: BLOOD CHOLESTEROL
     Route: 048
     Dates: start: 20110602

REACTIONS (6)
  - Coronary artery occlusion [Recovering/Resolving]
  - Fatigue [Recovering/Resolving]
  - Hyperglycaemia [Unknown]
  - Hypoglycaemia [Recovered/Resolved]
  - Feeling abnormal [Recovered/Resolved]
  - Hunger [Recovered/Resolved]
